FAERS Safety Report 7148417-9 (Version None)
Quarter: 2010Q4

REPORT INFORMATION
  Report Type: 
  Country: None (occurrence: None)
  Receive Date: 20101124
  Receipt Date: 20101111
  Transmission Date: 20110411
  Serious: Yes (Hospitalization)
  Sender: FDA-Public Use
  Company Number: 2010SP060610

PATIENT
  Age: 45 Year
  Sex: Female

DRUGS (4)
  1. DEXAMETHASONE [Suspect]
     Indication: PROPHYLAXIS
  2. ALIMTA [Suspect]
     Indication: NEOPLASM
     Dosage: 740 MG;Q3W;IV
     Route: 042
     Dates: start: 20101006
  3. DEXAMETHASONE [Suspect]
     Indication: NEOPLASM
     Dosage: 18 MG;IV
     Route: 042
     Dates: start: 20100921
  4. CISPLATIN [Suspect]
     Indication: NEOPLASM
     Dosage: 111 MG;Q3W;IV
     Route: 042
     Dates: start: 20101006

REACTIONS (3)
  - ANXIETY [None]
  - DEPRESSION [None]
  - SUICIDAL IDEATION [None]
